FAERS Safety Report 24400272 (Version 2)
Quarter: 2024Q4

REPORT INFORMATION
  Report Type: Spontaneous
  Country: RU (occurrence: RU)
  Receive Date: 20241005
  Receipt Date: 20241022
  Transmission Date: 20250115
  Serious: Yes (Other)
  Sender: ABBVIE
  Company Number: RU-JNJFOC-20240973870

PATIENT

DRUGS (2)
  1. IMBRUVICA [Suspect]
     Active Substance: IBRUTINIB
     Indication: Chronic lymphocytic leukaemia
     Route: 048
  2. ACALABRUTINIB [Concomitant]
     Active Substance: ACALABRUTINIB
     Indication: Chronic lymphocytic leukaemia
     Route: 065

REACTIONS (6)
  - Renal impairment [Unknown]
  - Dyspnoea [Unknown]
  - Atrial fibrillation [Unknown]
  - Diarrhoea [Unknown]
  - Headache [Unknown]
  - Haemorrhagic disorder [Unknown]
